FAERS Safety Report 9904107 (Version 1)
Quarter: 2014Q1

REPORT INFORMATION
  Report Type: Spontaneous
  Country: US (occurrence: US)
  Receive Date: 20140218
  Receipt Date: 20140218
  Transmission Date: 20141002
  Serious: No
  Sender: FDA-Public Use
  Company Number: US-BIOGENIDEC-2014BI013212

PATIENT
  Age: 58 Year
  Sex: Male

DRUGS (10)
  1. TECFIDERA [Suspect]
     Indication: MULTIPLE SCLEROSIS
     Route: 048
     Dates: start: 20131112, end: 20131118
  2. TECFIDERA [Suspect]
     Indication: MULTIPLE SCLEROSIS
     Route: 048
     Dates: start: 20131119
  3. DIOVAN HCT [Concomitant]
     Indication: HYPERTENSION
     Route: 048
     Dates: start: 20120416
  4. NORVASC [Concomitant]
     Indication: HYPERTENSION
     Route: 048
     Dates: start: 20140109
  5. LIPITOR [Concomitant]
     Indication: HYPERLIPIDAEMIA
     Route: 048
     Dates: start: 20120416
  6. ZETIA [Concomitant]
     Indication: HYPERLIPIDAEMIA
     Route: 048
     Dates: start: 20120416
  7. METOPROLOL SUCCINATE [Concomitant]
     Indication: HYPERTENSION
     Route: 048
     Dates: start: 20120419
  8. HYDROCODONE-APAP 5-325 [Concomitant]
     Route: 048
     Dates: start: 20120419
  9. METFORMIN [Concomitant]
     Indication: DIABETES MELLITUS
     Route: 048
     Dates: start: 20120416
  10. BENAZEPRIL [Concomitant]
     Route: 048
     Dates: start: 20130124

REACTIONS (1)
  - Hiccups [Not Recovered/Not Resolved]
